FAERS Safety Report 9723174 (Version 5)
Quarter: 2014Q2

REPORT INFORMATION
  Report Type: Report from Study
  Country: JP (occurrence: JP)
  Receive Date: 20131202
  Receipt Date: 20140430
  Transmission Date: 20141212
  Serious: Yes (Hospitalization)
  Sender: FDA-Public Use
  Company Number: JP-PFIZER INC-2013339319

PATIENT
  Age: 63 Year
  Sex: Female
  Weight: 39.3 kg

DRUGS (17)
  1. XALKORI [Suspect]
     Indication: NON-SMALL CELL LUNG CANCER
     Dosage: 250 MG, 2X/DAY
     Route: 048
     Dates: start: 20121207, end: 20121213
  2. XALKORI [Suspect]
     Dosage: 250 MG, 2X/DAY
     Route: 048
     Dates: start: 20121218, end: 20130112
  3. XALKORI [Suspect]
     Dosage: 250 MG, 2X/DAY
     Route: 048
     Dates: start: 20130115, end: 20130118
  4. XALKORI [Suspect]
     Dosage: 250 MG, 2X/DAY
     Route: 048
     Dates: start: 20130201, end: 20130331
  5. XALKORI [Suspect]
     Dosage: 250 MG, 2X/DAY
     Route: 048
     Dates: start: 20130412
  6. RIMATIL [Concomitant]
     Dosage: 100 MG, 3X/DAY
     Route: 048
  7. ASASURFAN [Concomitant]
     Dosage: 500 MG, 2X/DAY
     Route: 048
  8. BONALON [Concomitant]
     Dosage: 35 MG, WEEKLY
     Route: 048
  9. HIRUDOID [Concomitant]
     Dosage: UNK
     Route: 061
     Dates: start: 20130104
  10. ERYTHROMYCIN [Concomitant]
     Dosage: 200 MG, 3X/DAY
     Route: 048
     Dates: start: 20130118
  11. MUCODYNE [Concomitant]
     Dosage: 500 MG, 3X/DAY
     Route: 048
     Dates: start: 20130331, end: 20130402
  12. ASTOMIN [Concomitant]
     Dosage: 10 MG, 3X/DAY
     Route: 048
     Dates: start: 20130331, end: 20130402
  13. PL [Concomitant]
     Dosage: 1 G, 3X/DAY
     Route: 048
     Dates: start: 20130331, end: 20130402
  14. PRIMPERAN [Concomitant]
     Dosage: 5 MG, AS NEEDED
     Route: 048
     Dates: start: 20130328
  15. TANNALBIN [Concomitant]
     Dosage: 1 G, AS NEEDED
     Route: 048
     Dates: start: 20130328, end: 20130405
  16. BIOFERMIN [Concomitant]
     Dosage: 3 DF, 3X/DAY
     Route: 048
     Dates: start: 20130405, end: 20130426
  17. DECADRON [Concomitant]
     Dosage: 4 MG, 1X/DAY
     Route: 048
     Dates: start: 20130412, end: 20130416

REACTIONS (1)
  - Bronchopulmonary aspergillosis [Recovering/Resolving]
